FAERS Safety Report 24044055 (Version 1)
Quarter: 2024Q3

REPORT INFORMATION
  Report Type: Spontaneous
  Country: JP (occurrence: JP)
  Receive Date: 20240703
  Receipt Date: 20240703
  Transmission Date: 20241016
  Serious: Yes (Other)
  Sender: USV PRIVATE
  Company Number: JP-MLMSERVICE-20240612-PI095464-00336-1

PATIENT
  Age: 53 Year
  Sex: Male

DRUGS (1)
  1. ZOLEDRONIC ACID [Suspect]
     Active Substance: ZOLEDRONIC ACID
     Indication: Osteoporosis

REACTIONS (2)
  - Jaw fracture [Recovered/Resolved]
  - Osteonecrosis of jaw [Recovered/Resolved]
